FAERS Safety Report 9831789 (Version 2)
Quarter: 2014Q1

REPORT INFORMATION
  Report Type: Spontaneous
  Country: US (occurrence: US)
  Receive Date: 20140121
  Receipt Date: 20140203
  Transmission Date: 20141002
  Serious: Yes (Other)
  Sender: FDA-Public Use
  Company Number: US-PFIZER INC-2014013442

PATIENT
  Age: 68 Year
  Sex: Female

DRUGS (1)
  1. SUTENT [Suspect]
     Indication: SOFT TISSUE CANCER
     Dosage: 37.5 MG, DAILY (12.5 MG CAPSULE, TAKE 3 DAILY)
     Route: 048
     Dates: start: 20131017

REACTIONS (3)
  - Dry mouth [Unknown]
  - Alopecia [Unknown]
  - Off label use [Unknown]
